FAERS Safety Report 9816621 (Version 2)
Quarter: 2014Q1

REPORT INFORMATION
  Report Type: Spontaneous
  Country: US (occurrence: US)
  Receive Date: 20140114
  Receipt Date: 20140114
  Transmission Date: 20141002
  Serious: Yes (Hospitalization)
  Sender: FDA-Public Use
  Company Number: US-B.I. PHARMACEUTICALS,INC./RIDGEFIELD-2013-BI-22992BP

PATIENT
  Sex: Female
  Weight: 68.04 kg

DRUGS (12)
  1. PRADAXA [Suspect]
     Indication: ATRIAL FIBRILLATION
     Dosage: 300 MG
     Dates: start: 20120416, end: 20120825
  2. CYMBALTA [Concomitant]
     Dosage: 60 MG
  3. GLIPIZIDE [Concomitant]
     Dosage: 10 MG
  4. LASIX [Concomitant]
     Dosage: 40 MG
  5. METFORMIN [Concomitant]
     Dosage: 1000 MG
  6. METOPROLOL [Concomitant]
     Dosage: 50 MG
  7. SIMVASTATIN [Concomitant]
     Dosage: 20 MG
     Route: 048
  8. MIRTAZAPINE [Concomitant]
     Dosage: 30 MG
  9. ASPIRIN [Concomitant]
     Dosage: 81 MG
  10. DIGOXIN [Concomitant]
     Dosage: 0.125 MCG
  11. LORTAB [Concomitant]
  12. VALSARTAN [Concomitant]
     Dosage: 40 MG

REACTIONS (3)
  - Upper gastrointestinal haemorrhage [Recovered/Resolved]
  - Gastric mucosal lesion [Unknown]
  - Haemorrhagic anaemia [Unknown]
